FAERS Safety Report 19479010 (Version 3)
Quarter: 2021Q3

REPORT INFORMATION
  Report Type: Spontaneous
  Country: LT (occurrence: LT)
  Receive Date: 20210630
  Receipt Date: 20210729
  Transmission Date: 20211014
  Serious: Yes (Life-Threatening)
  Sender: FDA-Public Use
  Company Number: LT-ABBVIE-21K-234-3972846-00

PATIENT
  Age: 75 Year
  Sex: Female
  Weight: 59 kg

DRUGS (5)
  1. VENETOCLAX. [Suspect]
     Active Substance: VENETOCLAX
     Indication: ACUTE MYELOID LEUKAEMIA
     Route: 048
     Dates: start: 20201026, end: 20201027
  2. VENETOCLAX. [Suspect]
     Active Substance: VENETOCLAX
     Dosage: ACCORDING TO THE DOSE INCREASE SCHEDULE 100 MG?200 MG?400 MG?600 MG
     Route: 048
     Dates: start: 20201106
  3. ALLOPURINOL. [Concomitant]
     Active Substance: ALLOPURINOL
     Indication: PROPHYLAXIS
     Route: 048
     Dates: start: 20201026, end: 20201129
  4. ALLOPURINOL. [Concomitant]
     Active Substance: ALLOPURINOL
     Indication: DRUG THERAPY
  5. MICAFUNGIN. [Concomitant]
     Active Substance: MICAFUNGIN SODIUM
     Indication: ANTIFUNGAL PROPHYLAXIS
     Route: 042
     Dates: start: 20201026, end: 20201122

REACTIONS (3)
  - Acute kidney injury [Recovered/Resolved]
  - Tumour lysis syndrome [Recovered/Resolved]
  - Hyperphosphataemia [Recovered/Resolved]

NARRATIVE: CASE EVENT DATE: 20201027
